FAERS Safety Report 5164248-3 (Version None)
Quarter: 2006Q4

REPORT INFORMATION
  Report Type: 
  Country: None (occurrence: None)
  Receive Date: 20060918
  Receipt Date: 20051011
  Transmission Date: 20070319
  Serious: Yes (Life-Threatening, Disabling)
  Sender: FDA-Public Use
  Company Number: US-JNJFOC-20051003539

PATIENT
  Age: 45 Year
  Sex: Female
  Weight: 74.8435 kg

DRUGS (4)
  1. TOPAMAX [Suspect]
     Indication: BIPOLAR DISORDER
     Dosage: 25 MG, IN 1 DAY, ORAL
     Route: 048
     Dates: start: 20040301
  2. DEPAKOTE [Suspect]
     Indication: BIPOLAR DISORDER
     Dosage: 500 MG, 3 IN 1 DAY, ORAL
     Route: 048
     Dates: start: 20040301
  3. ABILIFY [Suspect]
     Indication: DRUG USE FOR UNKNOWN INDICATION
     Dosage: 10 MG, IN 1 DAY, ORAL
     Route: 048
     Dates: start: 20040301
  4. DALMANE [Suspect]
     Indication: DRUG USE FOR UNKNOWN INDICATION
     Dosage: 30 MG, IN 1 DAY
     Dates: start: 20040301

REACTIONS (1)
  - HEPATIC FAILURE [None]
